FAERS Safety Report 17890073 (Version 2)
Quarter: 2020Q2

REPORT INFORMATION
  Report Type: Report from Study
  Country: None (occurrence: SE)
  Receive Date: 20200612
  Receipt Date: 20200622
  Transmission Date: 20200714
  Serious: Yes (Death, Other)
  Sender: FDA-Public Use
  Company Number: SE-ABBVIE-20K-150-3310963-00

PATIENT
  Sex: Male

DRUGS (2)
  1. DUODOPA [Suspect]
     Active Substance: CARBIDOPA\LEVODOPA
     Route: 050
     Dates: start: 20160623
  2. DUODOPA [Suspect]
     Active Substance: CARBIDOPA\LEVODOPA
     Indication: PARKINSON^S DISEASE
     Route: 050
     Dates: start: 20160421, end: 2016

REACTIONS (15)
  - Peritoneal disorder [Unknown]
  - Malaise [Unknown]
  - Cerebral haemorrhage [Fatal]
  - Speech disorder [Not Recovered/Not Resolved]
  - Feeling abnormal [Not Recovered/Not Resolved]
  - Vomiting [Not Recovered/Not Resolved]
  - Nausea [Not Recovered/Not Resolved]
  - Haematemesis [Fatal]
  - Gastrointestinal injury [Fatal]
  - Gastric ulcer [Fatal]
  - On and off phenomenon [Not Recovered/Not Resolved]
  - Pulmonary oedema [Unknown]
  - Internal haemorrhage [Fatal]
  - Therapeutic product effect decreased [Not Recovered/Not Resolved]
  - Device dislocation [Unknown]

NARRATIVE: CASE EVENT DATE: 2020
